FAERS Safety Report 4727384-9 (Version None)
Quarter: 2005Q3

REPORT INFORMATION
  Report Type: 
  Country: None (occurrence: None)
  Receive Date: 20050727
  Receipt Date: 20050727
  Transmission Date: 20060218
  Serious: Yes (Hospitalization)
  Sender: FDA-Public Use
  Company Number: None

PATIENT
  Age: 66 Year
  Sex: Female
  Weight: 81.9 kg

DRUGS (11)
  1. BACLOFEN [Suspect]
     Indication: MUSCLE SPASMS
     Dosage: [PAST WEEK]
  2. LIPITOR [Concomitant]
  3. GLIPIZIDE [Concomitant]
  4. ZEMPLAR [Concomitant]
  5. EPOGEN [Concomitant]
  6. INSULIN [Concomitant]
  7. PREVACID [Concomitant]
  8. VICODIN [Concomitant]
  9. TRAZODONE HCL [Concomitant]
  10. PLAVIX [Concomitant]
  11. PRO-MED [Concomitant]

REACTIONS (2)
  - DRUG TOXICITY [None]
  - MENTAL STATUS CHANGES [None]
